FAERS Safety Report 11349260 (Version 1)
Quarter: 2015Q3

REPORT INFORMATION
  Report Type: Spontaneous
  Country: IT (occurrence: IT)
  Receive Date: 20150807
  Receipt Date: 20150807
  Transmission Date: 20151125
  Serious: Yes (Other)
  Sender: FDA-Public Use
  Company Number: IT-ACCORD-032754

PATIENT
  Age: 49 Year
  Sex: Female

DRUGS (3)
  1. CALCIUM LEVOFOLINATE TEVA [Concomitant]
     Active Substance: LEVOLEUCOVORIN CALCIUM
     Route: 042
     Dates: start: 20150701, end: 20150701
  2. FLUOROURACIL ACCORD [Suspect]
     Active Substance: FLUOROURACIL
     Indication: ADENOCARCINOMA GASTRIC
     Dosage: 50 MG/ML, ALSO RECEIVED 2110 MG INTRAVENOUS CYCLICAL ON 01-JUL-2015
     Route: 042
     Dates: start: 20150701, end: 20150702
  3. PREFOLIC [Concomitant]
     Active Substance: LEUCOVORIN CALCIUM
     Dosage: 350 MG
     Route: 042
     Dates: start: 20150702, end: 20150702

REACTIONS (3)
  - Anaemia [Recovering/Resolving]
  - Thrombocytopenia [Recovering/Resolving]
  - Melaena [Recovering/Resolving]

NARRATIVE: CASE EVENT DATE: 20150715
